FAERS Safety Report 4403354-5 (Version None)
Quarter: 2004Q3

REPORT INFORMATION
  Report Type: 
  Country: None (occurrence: None)
  Receive Date: 20040721
  Receipt Date: 20040505
  Transmission Date: 20050211
  Serious: No
  Sender: FDA-Public Use
  Company Number: US-GLAXOSMITHKLINE-A0509650A

PATIENT
  Age: 45 Year
  Sex: Female
  Weight: 65.5 kg

DRUGS (2)
  1. IMITREX [Suspect]
     Indication: MIGRAINE
     Dosage: 100MG AS REQUIRED
     Route: 048
  2. PREMARIN [Concomitant]

REACTIONS (3)
  - BURNING SENSATION [None]
  - DERMATITIS EXFOLIATIVE [None]
  - EYE SWELLING [None]
